FAERS Safety Report 24831241 (Version 1)
Quarter: 2025Q1

REPORT INFORMATION
  Report Type: Spontaneous
  Country: CA (occurrence: CA)
  Receive Date: 20250110
  Receipt Date: 20250110
  Transmission Date: 20250408
  Serious: Yes (Other)
  Sender: MERCK
  Company Number: CA-009507513-2501CAN002159

PATIENT
  Sex: Female

DRUGS (1)
  1. KEYTRUDA [Suspect]
     Active Substance: PEMBROLIZUMAB
     Indication: Adenocarcinoma gastric

REACTIONS (3)
  - Neuropathy peripheral [Unknown]
  - Myasthenia gravis [Unknown]
  - Atrioventricular block complete [Unknown]
